FAERS Safety Report 10678241 (Version 3)
Quarter: 2015Q1

REPORT INFORMATION
  Report Type: Spontaneous
  Country: JP (occurrence: JP)
  Receive Date: 20141229
  Receipt Date: 20150219
  Transmission Date: 20150720
  Serious: Yes (Hospitalization)
  Sender: FDA-Public Use
  Company Number: PHHY2014JP169129

PATIENT
  Age: 56 Year
  Sex: Female

DRUGS (1)
  1. ZOMETA [Suspect]
     Active Substance: ZOLEDRONIC ACID
     Indication: METASTASES TO BONE
     Dosage: 5 MG, PER ADMINISTRATION
     Route: 041
     Dates: start: 200703, end: 200812

REACTIONS (6)
  - Gingival swelling [Recovering/Resolving]
  - Gingival pain [Recovering/Resolving]
  - Nasal obstruction [Unknown]
  - Osteonecrosis of jaw [Recovered/Resolved]
  - Rhinorrhoea [Unknown]
  - Alveolar bone resorption [Recovering/Resolving]

NARRATIVE: CASE EVENT DATE: 200808
